FAERS Safety Report 9392409 (Version 1)
Quarter: 2013Q3

REPORT INFORMATION
  Report Type: Report from Study
  Country: JP (occurrence: JP)
  Receive Date: 20130710
  Receipt Date: 20130710
  Transmission Date: 20140515
  Serious: Yes (Congenital Anomaly)
  Sender: FDA-Public Use
  Company Number: JP-ROCHE-1244911

PATIENT
  Sex: Male
  Weight: 12.5 kg

DRUGS (1)
  1. OSELTAMIVIR [Suspect]
     Indication: PRODUCT USED FOR UNKNOWN INDICATION
     Route: 064
     Dates: start: 20091029, end: 20091103

REACTIONS (2)
  - Congenital genital malformation male [Unknown]
  - Maternal exposure timing unspecified [Unknown]
